FAERS Safety Report 7205642-6 (Version None)
Quarter: 2010Q4

REPORT INFORMATION
  Report Type: 
  Country: None (occurrence: None)
  Receive Date: 20101231
  Receipt Date: 20101220
  Transmission Date: 20110411
  Serious: Yes (Hospitalization, Other)
  Sender: FDA-Public Use
  Company Number: US-ELI_LILLY_AND_COMPANY-US201006005089

PATIENT
  Sex: Female

DRUGS (5)
  1. FORTEO [Suspect]
     Indication: OSTEOPOROSIS
     Dosage: 20 UG, DAILY (1/D)
     Route: 065
     Dates: start: 20090801, end: 20101001
  2. FORTEO [Suspect]
     Dosage: 20 UG, DAILY (1/D)
  3. CALCIUM 600 PLUS VITAMIN D [Concomitant]
  4. CELEBREX [Concomitant]
     Indication: ARTHRITIS
  5. TRAMADOL [Concomitant]

REACTIONS (8)
  - BACK PAIN [None]
  - FLANK PAIN [None]
  - HYPERCALCAEMIA [None]
  - INFECTION [None]
  - NEPHROLITHIASIS [None]
  - PYREXIA [None]
  - RASH MACULAR [None]
  - VOMITING [None]
